FAERS Safety Report 7126723-1 (Version None)
Quarter: 2010Q4

REPORT INFORMATION
  Report Type: 
  Country: None (occurrence: None)
  Receive Date: 20101129
  Receipt Date: 20101118
  Transmission Date: 20110411
  Serious: Yes (Other)
  Sender: FDA-Public Use
  Company Number: PHHY2010US79019

PATIENT
  Sex: Female

DRUGS (10)
  1. RECLAST [Suspect]
  2. DEPAKOTE [Concomitant]
  3. TOPAMAX [Concomitant]
  4. FIORINAL [Concomitant]
  5. IMITRIX [Concomitant]
  6. AMERGE [Concomitant]
  7. MOBIC [Concomitant]
  8. PHENERGAN ^AVENTIS PHARMA^ [Concomitant]
  9. VICODIN [Concomitant]
  10. VITAMINS [Concomitant]

REACTIONS (10)
  - ARTHRALGIA [None]
  - BLOOD UREA NITROGEN/CREATININE RATIO INCREASED [None]
  - GENERAL PHYSICAL HEALTH DETERIORATION [None]
  - HEADACHE [None]
  - INFLUENZA LIKE ILLNESS [None]
  - MIGRAINE [None]
  - NEUROPATHY PERIPHERAL [None]
  - SPLENOMEGALY [None]
  - VITAMIN B12 INCREASED [None]
  - WHITE BLOOD CELL COUNT INCREASED [None]
